FAERS Safety Report 7313124-6 (Version None)
Quarter: 2011Q1

REPORT INFORMATION
  Report Type: 
  Country: None (occurrence: None)
  Receive Date: 20110215
  Receipt Date: 20110215
  Transmission Date: 20110831
  Serious: Yes (Life-Threatening, Hospitalization)
  Sender: FDA-Public Use
  Company Number: None

PATIENT
  Age: 81 Year
  Sex: Male
  Weight: 75 kg

DRUGS (1)
  1. WARFARIN [Suspect]
     Indication: ATRIAL FIBRILLATION
     Dosage: 2.5 MG EVERY DAY PO
     Route: 048
     Dates: start: 20110119, end: 20110208

REACTIONS (5)
  - HYPERCOAGULATION [None]
  - DIZZINESS [None]
  - SYNCOPE [None]
  - GASTROINTESTINAL HAEMORRHAGE [None]
  - GASTRIC HAEMORRHAGE [None]
